FAERS Safety Report 7068157-4 (Version None)
Quarter: 2010Q4

REPORT INFORMATION
  Report Type: 
  Country: None (occurrence: None)
  Receive Date: 20101028
  Receipt Date: 20100921
  Transmission Date: 20110411
  Serious: Yes (Death, Other)
  Sender: FDA-Public Use
  Company Number: US-BAXTER-2010BH005745

PATIENT
  Age: 64 Year
  Sex: Female

DRUGS (41)
  1. HEPARIN SODIUM INJECTION [Suspect]
     Indication: HAEMODIALYSIS
     Route: 040
     Dates: start: 20080211, end: 20080229
  2. HEPARIN SODIUM INJECTION [Suspect]
     Indication: ANTICOAGULANT THERAPY
     Route: 040
     Dates: start: 20080211, end: 20080229
  3. HEPARIN SODIUM INJECTION [Suspect]
     Route: 042
     Dates: start: 20080211, end: 20080229
  4. HEPARIN SODIUM INJECTION [Suspect]
     Route: 042
     Dates: start: 20080211, end: 20080229
  5. HEPARIN SODIUM INJECTION [Suspect]
     Route: 040
     Dates: start: 20080129, end: 20080129
  6. HEPARIN SODIUM INJECTION [Suspect]
     Route: 040
     Dates: start: 20080129, end: 20080129
  7. HEPARIN SODIUM INJECTION [Suspect]
     Route: 042
     Dates: start: 20080128, end: 20080128
  8. HEPARIN SODIUM INJECTION [Suspect]
     Route: 042
     Dates: start: 20080128, end: 20080128
  9. HEPARIN SODIUM INJECTION [Suspect]
     Route: 040
     Dates: start: 20080130, end: 20080130
  10. HEPARIN SODIUM INJECTION [Suspect]
     Route: 040
     Dates: start: 20080130, end: 20080130
  11. HEPARIN SODIUM INJECTION [Suspect]
     Route: 042
     Dates: start: 20080128, end: 20080128
  12. HEPARIN SODIUM INJECTION [Suspect]
     Route: 042
     Dates: start: 20080128, end: 20080128
  13. HEPARIN SODIUM INJECTION [Suspect]
     Route: 040
     Dates: start: 20080201, end: 20080201
  14. HEPARIN SODIUM INJECTION [Suspect]
     Route: 040
     Dates: start: 20080201, end: 20080201
  15. HEPARIN SODIUM INJECTION [Suspect]
     Route: 040
     Dates: start: 20080204, end: 20080204
  16. HEPARIN SODIUM INJECTION [Suspect]
     Route: 040
     Dates: start: 20080204, end: 20080204
  17. HEPARIN SODIUM INJECTION [Suspect]
     Route: 040
     Dates: start: 20080208, end: 20080208
  18. HEPARIN SODIUM INJECTION [Suspect]
     Route: 040
     Dates: start: 20080208, end: 20080208
  19. EPOGEN [Suspect]
     Indication: PRODUCT USED FOR UNKNOWN INDICATION
     Route: 042
     Dates: start: 20080213, end: 20080222
  20. EPOGEN [Suspect]
     Route: 042
     Dates: start: 20080222, end: 20080229
  21. AMLODIPINE BESYLATE [Concomitant]
     Indication: PRODUCT USED FOR UNKNOWN INDICATION
     Route: 065
  22. PLAVIX [Concomitant]
     Indication: PRODUCT USED FOR UNKNOWN INDICATION
     Route: 065
  23. GLUCOSE [Concomitant]
     Indication: PRODUCT USED FOR UNKNOWN INDICATION
     Route: 065
  24. PROCRIT [Concomitant]
     Indication: PRODUCT USED FOR UNKNOWN INDICATION
     Route: 065
  25. LEXAPRO [Concomitant]
     Indication: PRODUCT USED FOR UNKNOWN INDICATION
     Route: 065
  26. FLONASE [Concomitant]
     Indication: PRODUCT USED FOR UNKNOWN INDICATION
     Route: 065
  27. NOVOLIN R [Concomitant]
     Indication: PRODUCT USED FOR UNKNOWN INDICATION
     Route: 065
  28. REGLAN [Concomitant]
     Indication: PRODUCT USED FOR UNKNOWN INDICATION
     Route: 065
  29. CELL CEPT [Concomitant]
     Indication: PRODUCT USED FOR UNKNOWN INDICATION
     Route: 065
  30. NORMAL SALINE [Concomitant]
     Indication: PRODUCT USED FOR UNKNOWN INDICATION
     Route: 065
  31. PANTOPRAZOLE [Concomitant]
     Indication: PRODUCT USED FOR UNKNOWN INDICATION
     Route: 065
  32. SIMVASTATIN [Concomitant]
     Indication: PRODUCT USED FOR UNKNOWN INDICATION
     Route: 065
  33. LASIX [Concomitant]
     Indication: PRODUCT USED FOR UNKNOWN INDICATION
     Route: 065
  34. FEOSOL [Concomitant]
     Indication: PRODUCT USED FOR UNKNOWN INDICATION
     Route: 065
  35. ESOMEPRAZOLE [Concomitant]
     Indication: PRODUCT USED FOR UNKNOWN INDICATION
     Route: 065
  36. CITALOPRAM HYDROBROMIDE [Concomitant]
     Indication: PRODUCT USED FOR UNKNOWN INDICATION
     Route: 065
  37. PRILOSEC [Concomitant]
     Indication: PRODUCT USED FOR UNKNOWN INDICATION
     Route: 065
  38. ATORVASTATIN CALCIUM [Concomitant]
     Indication: PRODUCT USED FOR UNKNOWN INDICATION
     Route: 065
  39. DOXAZOSIN MESYLATE [Concomitant]
     Indication: PRODUCT USED FOR UNKNOWN INDICATION
     Route: 065
  40. CIPROFLOXACIN [Concomitant]
     Indication: PRODUCT USED FOR UNKNOWN INDICATION
     Route: 065
  41. VANCOMYCIN [Concomitant]
     Indication: PRODUCT USED FOR UNKNOWN INDICATION
     Route: 065

REACTIONS (4)
  - CARDIO-RESPIRATORY ARREST [None]
  - DIZZINESS [None]
  - DYSPNOEA [None]
  - LOSS OF CONSCIOUSNESS [None]
